FAERS Safety Report 5226473-2 (Version None)
Quarter: 2007Q1

REPORT INFORMATION
  Report Type: 
  Country: None (occurrence: None)
  Receive Date: 20070201
  Receipt Date: 20070126
  Transmission Date: 20070707
  Serious: Yes (Life-Threatening)
  Sender: FDA-Public Use
  Company Number: 2007AP00668

PATIENT
  Age: 80 Year
  Sex: Male

DRUGS (2)
  1. ANAPEINE [Suspect]
     Route: 065
     Dates: start: 20061001, end: 20061001
  2. INFLUENZA HA VACCINE [Concomitant]
     Route: 042

REACTIONS (1)
  - SHOCK [None]
